FAERS Safety Report 7860960-3 (Version None)
Quarter: 2011Q4

REPORT INFORMATION
  Report Type: 
  Country: None (occurrence: None)
  Receive Date: 20111025
  Receipt Date: 20111011
  Transmission Date: 20120403
  Serious: Yes (Disabling)
  Sender: FDA-Public Use
  Company Number: 2011AP002376

PATIENT
  Age: 79 Year
  Sex: Female

DRUGS (4)
  1. ATORVASTATIN [Concomitant]
  2. CARBOMER [Concomitant]
  3. ALENDRONATE SODIUM [Suspect]
     Dates: start: 20110905
  4. CALCICHEW D3 (LEKOVIT CA) [Concomitant]

REACTIONS (1)
  - EPIGASTRIC DISCOMFORT [None]
